FAERS Safety Report 4273215-3 (Version None)
Quarter: 2004Q1

REPORT INFORMATION
  Report Type: 
  Country: None (occurrence: None)
  Receive Date: 20040116
  Receipt Date: 20030318
  Transmission Date: 20041129
  Serious: Yes (Hospitalization)
  Sender: FDA-Public Use
  Company Number: JP-ROCHE-334147

PATIENT
  Age: 34 Year
  Sex: Male
  Weight: 42 kg

DRUGS (14)
  1. MYCOPHENOLATE MOFETIL [Suspect]
     Route: 048
     Dates: start: 20011114, end: 20020130
  2. MYCOPHENOLATE MOFETIL [Suspect]
     Route: 048
     Dates: start: 20020131, end: 20020320
  3. MYCOPHENOLATE MOFETIL [Suspect]
     Route: 048
     Dates: start: 20020321, end: 20021114
  4. MYCOPHENOLATE MOFETIL [Suspect]
     Route: 048
     Dates: end: 20030718
  5. PROGRAF [Suspect]
     Route: 041
     Dates: start: 20011113, end: 20011115
  6. PROGRAF [Suspect]
     Route: 048
     Dates: start: 20011116, end: 20021114
  7. PREDONINE [Concomitant]
     Route: 048
     Dates: start: 20011114
  8. SOLU-MEDROL [Concomitant]
     Route: 041
     Dates: start: 20011113, end: 20011113
  9. ADALAT CC [Concomitant]
     Indication: DRUG USE FOR UNKNOWN INDICATION
     Route: 048
     Dates: start: 20011123
  10. GASTER [Concomitant]
     Indication: DRUG USE FOR UNKNOWN INDICATION
     Route: 065
     Dates: start: 20011113
  11. PENICILLIN [Concomitant]
     Indication: DRUG USE FOR UNKNOWN INDICATION
     Route: 041
     Dates: start: 20011113, end: 20011115
  12. AUGMENTIN [Concomitant]
     Indication: DRUG USE FOR UNKNOWN INDICATION
     Route: 048
     Dates: start: 20011116, end: 20011123
  13. ULGUT [Concomitant]
     Indication: DRUG USE FOR UNKNOWN INDICATION
     Route: 048
  14. NEORAL [Concomitant]
     Route: 048

REACTIONS (3)
  - DIARRHOEA [None]
  - HYPERURICAEMIA [None]
  - URETERIC STENOSIS [None]
